FAERS Safety Report 7943563-1 (Version None)
Quarter: 2011Q4

REPORT INFORMATION
  Report Type: 
  Country: None (occurrence: None)
  Receive Date: 20111128
  Receipt Date: 20111117
  Transmission Date: 20120403
  Serious: Yes (Other)
  Sender: FDA-Public Use
  Company Number: PHEH2011US009727

PATIENT
  Sex: Female

DRUGS (5)
  1. ZOMETA [Suspect]
  2. TAXOTERE [Suspect]
     Dosage: 55 MG, UNK
  3. WARFARIN SODIUM [Concomitant]
     Indication: NON-SMALL CELL LUNG CANCER
     Route: 051
  4. DEXAMETHASONE [Suspect]
     Dosage: 4 MG, UNK
  5. LASIX [Concomitant]
     Dosage: 60 MG, (40MG MORNING + 20 MG EVENING) DAILY

REACTIONS (9)
  - PLEURAL EFFUSION [None]
  - DYSPNOEA [None]
  - RASH MACULAR [None]
  - SKIN DISORDER [None]
  - SWELLING [None]
  - COUGH [None]
  - SLEEP DISORDER [None]
  - ERYTHEMA [None]
  - HEPATIC LESION [None]
